FAERS Safety Report 23907012 (Version 1)
Quarter: 2024Q2

REPORT INFORMATION
  Report Type: Spontaneous
  Country: US (occurrence: US)
  Receive Date: 20240528
  Receipt Date: 20240528
  Transmission Date: 20240716
  Serious: Yes (Life-Threatening, Hospitalization, Other)
  Sender: FDA-Public Use
  Company Number: US-LUPIN PHARMACEUTICALS INC.-2024-04227

PATIENT
  Age: 39 Year
  Sex: Male

DRUGS (1)
  1. AMLODIPINE [Suspect]
     Active Substance: AMLODIPINE BESYLATE
     Indication: Hypertension
     Dosage: 10 MG, TOOK 80 TABLETS IN AN ATTEMPT TO SUICIDE.
     Route: 048

REACTIONS (8)
  - Intentional overdose [Unknown]
  - Toxicity to various agents [Recovered/Resolved]
  - Suicide attempt [Recovered/Resolved]
  - Capillary leak syndrome [Recovered/Resolved]
  - Distributive shock [Recovered/Resolved]
  - Acute respiratory distress syndrome [Recovered/Resolved]
  - Renal failure [Recovered/Resolved]
  - Lactic acidosis [Recovered/Resolved]
